FAERS Safety Report 6073512-5 (Version None)
Quarter: 2009Q1

REPORT INFORMATION
  Report Type: 
  Country: None (occurrence: None)
  Receive Date: 20090211
  Receipt Date: 20090204
  Transmission Date: 20090719
  Serious: Yes (Other)
  Sender: FDA-Public Use
  Company Number: CA-BAYER-200912537NA

PATIENT
  Age: 70 Year
  Sex: Male
  Weight: 84 kg

DRUGS (2)
  1. SORAFENIB [Suspect]
     Indication: PROSTATE CANCER
     Dosage: TOTAL DAILY DOSE: 800 MG  UNIT DOSE: 200 MG
     Dates: start: 20081007, end: 20090106
  2. CASODEX [Suspect]
     Indication: PROSTATE CANCER
     Dosage: TOTAL DAILY DOSE: 50 MG
     Route: 048
     Dates: start: 20081007, end: 20090106

REACTIONS (1)
  - MEDICAL DEVICE COMPLICATION [None]
